FAERS Safety Report 10086074 (Version 1)
Quarter: 2014Q2

REPORT INFORMATION
  Report Type: Spontaneous
  Country: None (occurrence: None)
  Receive Date: 20140415
  Receipt Date: 20140415
  Transmission Date: 20141212
  Serious: Yes (Death, Hospitalization, Other)
  Sender: FDA-Public Use
  Company Number: 08-AUR-06568

PATIENT
  Age: 73 Year
  Sex: Female

DRUGS (3)
  1. ZOLPIDEM [Suspect]
     Indication: PRODUCT USED FOR UNKNOWN INDICATION
  2. QUETIAPINE (QUETIAPINE) [Concomitant]
  3. RIVASTIGMINE (RIVASTIGMINE) [Concomitant]

REACTIONS (11)
  - Ascites [None]
  - Jaundice [None]
  - Dyskinesia [None]
  - Disorientation [None]
  - Abdominal distension [None]
  - Joint swelling [None]
  - Cryptogenic cirrhosis [None]
  - Hepatocellular carcinoma [None]
  - Sepsis [None]
  - Depressed level of consciousness [None]
  - Hepatic failure [None]
